FAERS Safety Report 10833450 (Version 1)
Quarter: 2015Q1

REPORT INFORMATION
  Report Type: Report from Study
  Country: HU (occurrence: HU)
  Receive Date: 20150219
  Receipt Date: 20150219
  Transmission Date: 20150721
  Serious: Yes (Death, Hospitalization, Other)
  Sender: FDA-Public Use
  Company Number: HU-CELGENE-HUN-2015021778

PATIENT
  Age: 78 Year
  Sex: Male
  Weight: 115 kg

DRUGS (23)
  1. REVLIMID [Suspect]
     Active Substance: LENALIDOMIDE
     Route: 048
     Dates: start: 20130826, end: 20130902
  2. CONCOR [Concomitant]
     Active Substance: BISOPROLOL FUMARATE
     Indication: ATRIAL FIBRILLATION
     Dosage: 1 MILLIGRAM
     Route: 048
     Dates: start: 20111010
  3. SIMVOR [Concomitant]
     Active Substance: SIMVASTATIN
     Indication: CARDIAC FAILURE
     Dosage: 20 MILLIGRAM
     Route: 048
     Dates: start: 20111010
  4. VEROSPIRON [Concomitant]
     Active Substance: SPIRONOLACTONE
     Indication: CARDIAC FAILURE
     Route: 048
     Dates: start: 20111010
  5. KALIUM-R [Concomitant]
     Indication: PROPHYLAXIS
     Dosage: 200 MILLIGRAM
     Route: 048
     Dates: start: 20111010
  6. LYRICA [Concomitant]
     Active Substance: PREGABALIN
     Indication: DIABETES MELLITUS
     Dosage: 2400 MILLIGRAM
     Route: 048
     Dates: start: 20111010
  7. DEXAMETHASONE. [Suspect]
     Active Substance: DEXAMETHASONE
     Indication: PLASMA CELL MYELOMA
     Route: 065
     Dates: start: 20111024, end: 20111114
  8. DEXAMETHASONE. [Suspect]
     Active Substance: DEXAMETHASONE
     Route: 065
     Dates: start: 20120410, end: 20120501
  9. FUROSEMIDE. [Concomitant]
     Active Substance: FUROSEMIDE
     Indication: CARDIAC FAILURE
     Dosage: 300 MILLIGRAM
     Route: 048
     Dates: start: 20111010
  10. NITROMINT RETARD [Concomitant]
     Indication: CARDIAC FAILURE
     Dosage: 800 MILLIGRAM
     Route: 048
     Dates: start: 20111010
  11. NOOTROPIL [Concomitant]
     Active Substance: PIRACETAM
     Indication: CEREBROVASCULAR ACCIDENT
     Dosage: 25 MILLIGRAM
     Route: 048
     Dates: start: 20130909
  12. CIFRAN [Concomitant]
     Active Substance: CIPROFLOXACIN
     Indication: ANTIBIOTIC PROPHYLAXIS
     Dosage: 10 MILLIGRAM
     Route: 048
     Dates: start: 20111024
  13. REVLIMID [Suspect]
     Active Substance: LENALIDOMIDE
     Indication: PLASMA CELL MYELOMA
     Route: 048
     Dates: start: 20111024, end: 20111113
  14. CITALOPRAM [Concomitant]
     Active Substance: CITALOPRAM HYDROBROMIDE
     Indication: CEREBROVASCULAR ACCIDENT
     Dosage: 20 MILLIGRAM
     Route: 048
     Dates: start: 20130909
  15. EDNYT [Concomitant]
     Indication: CARDIAC FAILURE
     Dosage: 30 MILLIGRAM
     Route: 048
     Dates: start: 20111010
  16. LANSOPTOL [Concomitant]
     Indication: ILL-DEFINED DISORDER
     Dosage: 5.2 MILLIGRAM
     Route: 048
     Dates: start: 20111024
  17. MILURIT [Concomitant]
     Active Substance: ALLOPURINOL
     Indication: PROPHYLAXIS
     Dosage: 10 MILLIGRAM
     Route: 048
     Dates: start: 20111010
  18. TELVIRAN [Concomitant]
     Indication: ANTIVIRAL TREATMENT
     Route: 048
     Dates: start: 20111024
  19. REVLIMID [Suspect]
     Active Substance: LENALIDOMIDE
     Dosage: DOSE DECREASE
     Route: 048
     Dates: start: 20120116, end: 20120205
  20. DEXAMETHASONE. [Suspect]
     Active Substance: DEXAMETHASONE
     Route: 065
     Dates: start: 20120116, end: 20120206
  21. DEXAMETHASONE. [Suspect]
     Active Substance: DEXAMETHASONE
     Route: 065
     Dates: start: 20130826, end: 20130826
  22. DEXAMETHASONE. [Suspect]
     Active Substance: DEXAMETHASONE
     Route: 065
     Dates: start: 20080923, end: 20081208
  23. XARELTO [Concomitant]
     Active Substance: RIVAROXABAN
     Indication: DEEP VEIN THROMBOSIS
     Route: 048
     Dates: start: 20121120

REACTIONS (1)
  - Acute myeloid leukaemia [Fatal]

NARRATIVE: CASE EVENT DATE: 20141105
